FAERS Safety Report 4664805-4 (Version None)
Quarter: 2005Q2

REPORT INFORMATION
  Report Type: 
  Country: None (occurrence: None)
  Receive Date: 20050518
  Receipt Date: 20050502
  Transmission Date: 20051028
  Serious: Yes (Hospitalization, Other)
  Sender: FDA-Public Use
  Company Number: DE-JNJFOC-20050501023

PATIENT
  Age: 25 Year
  Sex: Male

DRUGS (23)
  1. HALDOL DECANOAT [Suspect]
     Route: 030
  2. PIPAMPERON [Suspect]
     Route: 049
  3. PIPAMPERON [Suspect]
     Indication: AGGRESSION
     Route: 049
  4. HALDOL [Suspect]
     Dosage: AS NEEDED
     Route: 049
  5. HALDOL [Suspect]
     Route: 049
  6. CLOZAPINE [Concomitant]
     Route: 049
  7. LORAZEPAM [Concomitant]
     Indication: AGITATION
     Dosage: AS NEEDED
     Route: 049
  8. DIAZEP [Concomitant]
     Route: 049
  9. DIPYRONE TAB [Concomitant]
     Route: 049
  10. DIPYRONE TAB [Concomitant]
     Indication: PAIN
     Dosage: AS NEEDED
     Route: 049
  11. GASTROZEPIN [Concomitant]
     Indication: PROPHYLAXIS
     Route: 049
  12. LACTULOSE RATIOPHARM [Concomitant]
     Indication: CONSTIPATION
     Route: 049
  13. DULCOLAX [Concomitant]
     Indication: CONSTIPATION
     Dosage: AS NEEDED
  14. BORO-SCOPOL N [Concomitant]
     Route: 049
  15. BIPERIDEN-NEURAXPHAM 4 [Concomitant]
     Indication: PARKINSONISM
     Route: 049
  16. FLOXAL AT [Concomitant]
  17. FLOXAL AT [Concomitant]
     Indication: EYE INFECTION
     Dosage: 1 DROP FOUR TIMES A DAY
  18. BATRAFEN [Concomitant]
     Indication: FUNGAL INFECTION
     Dosage: BATRAFEN GEL APPLIED TWICE A DAY
  19. CORNEREGEL [Concomitant]
     Indication: EYE INJURY
     Dosage: 12 DROPS PER DAY
  20. MAALOXAN [Concomitant]
  21. MAALOXAN [Concomitant]
     Indication: PROPHYLAXIS
     Dosage: AS NEEDED
  22. FLOXAL-AS [Concomitant]
  23. FLOXAL-AS [Concomitant]
     Indication: EYE INFECTION
     Dosage: 1 DROP 3 TIMES A DAY

REACTIONS (2)
  - AGGRESSION [None]
  - OCULOGYRATION [None]
